FAERS Safety Report 23049523 (Version 1)
Quarter: 2023Q4

REPORT INFORMATION
  Report Type: Spontaneous
  Country: RO (occurrence: RO)
  Receive Date: 20231010
  Receipt Date: 20231010
  Transmission Date: 20240110
  Serious: Yes (Other)
  Sender: FDA-Public Use
  Company Number: RO-BAYER-2023A141821

PATIENT
  Age: 43 Year
  Sex: Female

DRUGS (2)
  1. GADOBUTROL [Suspect]
     Active Substance: GADOBUTROL
     Indication: Angiogram
     Dosage: 10 ML, ONCE
     Route: 042
     Dates: start: 20230918, end: 20230918
  2. GADOBUTROL [Suspect]
     Active Substance: GADOBUTROL
     Indication: Angiogram
     Dosage: UNK

REACTIONS (4)
  - Seizure [None]
  - Loss of consciousness [None]
  - Nausea [None]
  - Dysgeusia [None]

NARRATIVE: CASE EVENT DATE: 20230918
